APPROVED DRUG PRODUCT: CIMETIDINE
Active Ingredient: CIMETIDINE
Strength: 200MG
Dosage Form/Route: TABLET;ORAL
Application: A075122 | Product #002
Applicant: SANDOZ INC
Approved: Jun 19, 1998 | RLD: No | RS: No | Type: DISCN